FAERS Safety Report 8517032 (Version 2)
Quarter: 2013Q2

REPORT INFORMATION
  Report Type: Spontaneous
  Country: US (occurrence: None)
  Receive Date: 20120227
  Receipt Date: 20120709
  Transmission Date: 20140414
  Serious: Yes (Other)
  Sender: FDA-Public Use
  Company Number: PHHY2011US33492

PATIENT
  Age: 84 Year
  Sex: Female
  Weight: 73.5 kg

DRUGS (5)
  1. GLEEVEC [Suspect]
     Indication: CHRONIC MYELOID LEUKAEMIA
     Dosage: 400 MG, DAILY, ORAL
     Route: 048
     Dates: start: 20040101
  2. XALATAN [Concomitant]
  3. TUMS (CALCIUM CARBONATE) [Concomitant]
  4. DORZOLAMIDE W/TIMOLOL (DORZOLAMIDE, TIMOLOL) [Concomitant]
  5. CALCIUM CARBONATE [Concomitant]

REACTIONS (4)
  - GLAUCOMA [None]
  - DIARRHOEA [None]
  - Dyspepsia [None]
  - Red blood cell count decreased [None]
